FAERS Safety Report 9097526 (Version 2)
Quarter: 2013Q2

REPORT INFORMATION
  Report Type: Spontaneous
  Country: FR (occurrence: FR)
  Receive Date: 20130212
  Receipt Date: 20130430
  Transmission Date: 20140414
  Serious: Yes (Disabling)
  Sender: FDA-Public Use
  Company Number: FR-ROCHE-1182292

PATIENT
  Age: 73 Year
  Sex: Female
  Weight: 52 kg

DRUGS (4)
  1. RIVOTRIL [Suspect]
     Indication: NEURALGIA
     Dosage: BLUE DROPS
     Route: 048
     Dates: start: 1990
  2. RIVOTRIL [Suspect]
     Dosage: BLUE DROPS
     Route: 048
     Dates: start: 20030121
  3. DITROPAN [Concomitant]
     Indication: INCONTINENCE
     Route: 048
     Dates: start: 1993
  4. GAVISCON (FRANCE) [Concomitant]
     Indication: THERMAL BURN
     Route: 048

REACTIONS (1)
  - Musculoskeletal stiffness [Not Recovered/Not Resolved]
